FAERS Safety Report 5108850-3 (Version None)
Quarter: 2006Q3

REPORT INFORMATION
  Report Type: 
  Country: None (occurrence: None)
  Receive Date: 20060915
  Receipt Date: 20060915
  Transmission Date: 20061208
  Serious: No
  Sender: FDA-Public Use
  Company Number: None

PATIENT
  Sex: Male
  Weight: 68.0396 kg

DRUGS (1)
  1. VIOXX [Suspect]
     Indication: OSTEOARTHRITIS
     Dosage: 25       ONCE OR TWICE/DAY  PO
     Route: 048

REACTIONS (3)
  - ARRHYTHMIA [None]
  - EXTRASYSTOLES [None]
  - OEDEMA PERIPHERAL [None]
